FAERS Safety Report 9333670 (Version 1)
Quarter: 2013Q2

REPORT INFORMATION
  Report Type: Spontaneous
  Country: US (occurrence: US)
  Receive Date: 20130606
  Receipt Date: 20130606
  Transmission Date: 20140414
  Serious: No
  Sender: FDA-Public Use
  Company Number: US-AMGEN-USASP2012082442

PATIENT
  Age: 75 Year
  Sex: Female

DRUGS (3)
  1. PROLIA [Suspect]
     Indication: OSTEOPOROSIS POSTMENOPAUSAL
     Dosage: UNK
  2. ZOLOFT [Concomitant]
     Indication: DEPRESSION
     Dosage: UNK
  3. NAMENDA [Concomitant]
     Indication: DEMENTIA
     Dosage: UNK

REACTIONS (6)
  - Weight decreased [Unknown]
  - Weight gain poor [Unknown]
  - Memory impairment [Unknown]
  - Tooth loss [Unknown]
  - Tooth disorder [Unknown]
  - Blood cholesterol increased [Unknown]
